FAERS Safety Report 22598579 (Version 4)
Quarter: 2023Q2

REPORT INFORMATION
  Report Type: Spontaneous
  Country: PT (occurrence: PT)
  Receive Date: 20230614
  Receipt Date: 20230626
  Transmission Date: 20230721
  Serious: Yes (Life-Threatening, Hospitalization, Other)
  Sender: FDA-Public Use
  Company Number: PT-MYLANLABS-2023M1057416

PATIENT
  Age: 19 Year
  Sex: Male

DRUGS (8)
  1. VENLAFAXINE [Interacting]
     Active Substance: VENLAFAXINE HYDROCHLORIDE
     Indication: Attention deficit hyperactivity disorder
     Dosage: 75 MG
     Route: 065
  2. VENLAFAXINE [Interacting]
     Active Substance: VENLAFAXINE HYDROCHLORIDE
     Indication: Psychomotor hyperactivity
  3. VENLAFAXINE [Interacting]
     Active Substance: VENLAFAXINE HYDROCHLORIDE
     Indication: Depression
  4. QUETIAPINE [Suspect]
     Active Substance: QUETIAPINE
     Indication: Psychomotor hyperactivity
     Dosage: 50 MG
     Route: 065
  5. QUETIAPINE [Suspect]
     Active Substance: QUETIAPINE
     Indication: Attention deficit hyperactivity disorder
  6. QUETIAPINE [Suspect]
     Active Substance: QUETIAPINE
     Indication: Depressed mood
  7. LISDEXAMFETAMINE DIMESYLATE [Interacting]
     Active Substance: LISDEXAMFETAMINE DIMESYLATE
     Indication: Attention deficit hyperactivity disorder
     Dosage: UNK
     Route: 065
  8. LISDEXAMFETAMINE DIMESYLATE [Interacting]
     Active Substance: LISDEXAMFETAMINE DIMESYLATE
     Indication: Psychomotor hyperactivity

REACTIONS (14)
  - Serotonin syndrome [Recovered/Resolved]
  - Tachycardia [Unknown]
  - Agitation [Unknown]
  - Muscle rigidity [Unknown]
  - Opsoclonus myoclonus [Unknown]
  - Pyrexia [Unknown]
  - Mydriasis [Unknown]
  - Tachypnoea [Unknown]
  - Hyperhidrosis [Unknown]
  - Trismus [Unknown]
  - Dyskinesia [Unknown]
  - Hyperreflexia [Unknown]
  - Hypertension [Unknown]
  - Drug interaction [Unknown]
